FAERS Safety Report 5895963-1 (Version None)
Quarter: 2008Q3

REPORT INFORMATION
  Report Type: 
  Country: None (occurrence: None)
  Receive Date: 20080924
  Receipt Date: 20080922
  Transmission Date: 20090109
  Serious: Yes (Hospitalization, Other)
  Sender: FDA-Public Use
  Company Number: GB-ROXANE LABORATORIES, INC.-2008-RO-00020RO

PATIENT
  Age: 39 Year
  Sex: Female
  Weight: 52 kg

DRUGS (25)
  1. LITHIUM CARBONATE [Suspect]
     Indication: POOR QUALITY SLEEP
     Dosage: 1.7G
  2. LITHIUM CARBONATE [Suspect]
     Indication: EATING DISORDER
  3. LITHIUM CARBONATE [Suspect]
     Indication: AGITATION
  4. LITHIUM CARBONATE [Suspect]
     Indication: BIPOLAR DISORDER
  5. OLANZAPINE [Suspect]
     Dosage: 20MG
  6. CLONAZEPAM [Suspect]
     Indication: AGITATION
     Dosage: .5MG
     Route: 048
  7. CLONAZEPAM [Suspect]
     Indication: CONFUSIONAL STATE
  8. CLONAZEPAM [Suspect]
     Indication: DISORIENTATION
  9. FOLIC ACID [Suspect]
     Dosage: 500MCG
  10. LACTULOSE [Suspect]
  11. RANITIDINE [Concomitant]
     Indication: PREMEDICATION
     Route: 042
  12. METOCLOPRAMIDE [Concomitant]
     Indication: PREMEDICATION
     Dosage: 10MG
     Route: 042
  13. SODIUM CITRATE [Concomitant]
     Indication: PREMEDICATION
     Route: 048
  14. THIOPENTONE [Concomitant]
     Indication: INDUCTION OF ANAESTHESIA
  15. SUXAMETHONIUM [Concomitant]
     Indication: INDUCTION OF ANAESTHESIA
  16. ISOFLURANE [Concomitant]
     Indication: MAINTENANCE OF ANAESTHESIA
  17. OXYGEN [Concomitant]
     Indication: MAINTENANCE OF ANAESTHESIA
  18. HARTMANN'S SOLUTION [Concomitant]
  19. OXYTOCIN [Concomitant]
  20. AMOXICILLIN + CLAVULANATE POTASSIUM [Concomitant]
  21. PROPOFOL [Concomitant]
     Indication: SEDATION
  22. ATRACURIUM BESYLATE [Concomitant]
     Indication: PARALYSIS
  23. FENTANYL [Concomitant]
     Indication: SEDATION
  24. NORADRENALINE [Concomitant]
     Indication: BLOOD PRESSURE MANAGEMENT
  25. WHOLE BLOOD [Concomitant]
     Indication: BLOOD PRESSURE MANAGEMENT

REACTIONS (12)
  - AGITATION [None]
  - ANAEMIA [None]
  - BLOOD CREATININE ABNORMAL [None]
  - CAESAREAN SECTION [None]
  - CONFUSIONAL STATE [None]
  - DELAYED RECOVERY FROM ANAESTHESIA [None]
  - DISORIENTATION [None]
  - HYDRONEPHROSIS [None]
  - RESTLESSNESS [None]
  - THERAPEUTIC AGENT TOXICITY [None]
  - TRANSVERSE PRESENTATION [None]
  - URINOMA [None]
